FAERS Safety Report 5484632-8 (Version None)
Quarter: 2007Q4

REPORT INFORMATION
  Report Type: 
  Country: None (occurrence: None)
  Receive Date: 20071010
  Receipt Date: 20070924
  Transmission Date: 20080405
  Serious: Yes (Hospitalization, Other)
  Sender: FDA-Public Use
  Company Number: 2007BI021114

PATIENT
  Age: 42 Year
  Sex: Female
  Weight: 46 kg

DRUGS (1)
  1. AVONEX [Suspect]
     Indication: MULTIPLE SCLEROSIS
     Dosage: QW; IM
     Route: 030
     Dates: start: 20021201

REACTIONS (5)
  - ABDOMINAL PAIN UPPER [None]
  - BENIGN BREAST NEOPLASM [None]
  - BREAST CANCER [None]
  - NAUSEA [None]
  - PAIN IN EXTREMITY [None]
